FAERS Safety Report 6307037-6 (Version None)
Quarter: 2009Q3

REPORT INFORMATION
  Report Type: 
  Country: None (occurrence: None)
  Receive Date: 20090812
  Receipt Date: 20090803
  Transmission Date: 20100115
  Serious: Yes (Other)
  Sender: FDA-Public Use
  Company Number: PHHY2009JP26403

PATIENT
  Sex: Male
  Weight: 66 kg

DRUGS (11)
  1. COMTAN [Suspect]
     Indication: PARKINSON'S DISEASE
     Dosage: 3 DF, UNK
     Route: 048
     Dates: start: 20090624, end: 20090627
  2. CABASER [Concomitant]
     Dosage: 4 DF, UNK
     Route: 048
  3. CABASER [Concomitant]
     Dosage: 4 DF, UNK
     Route: 048
  4. CARBIDOPA AND LEVODOPA [Concomitant]
     Dosage: 3 DF, UNK
     Route: 048
  5. CHLORMADINONE ACETATE TAB [Concomitant]
     Dosage: 2 DF, UNK
     Route: 048
  6. ARICEPT [Concomitant]
     Dosage: 0.5 DF, UNK
     Route: 048
  7. ARICEPT [Concomitant]
     Dosage: 0.5 DF, UNK
     Route: 048
  8. TICLOPIDINE HYDROCHLORIDE [Concomitant]
     Dosage: 1 DF, UNK
     Route: 048
  9. PRAMIPEXOLE DIHYDROCHLORIDE [Concomitant]
     Dosage: 6 DF, UNK
     Route: 048
     Dates: start: 20081204
  10. GEBEN [Concomitant]
  11. BROMELAIN [Concomitant]

REACTIONS (8)
  - BLOOD POTASSIUM INCREASED [None]
  - BLOOD UREA INCREASED [None]
  - EOSINOPHILIA [None]
  - EOSINOPHILIC PNEUMONIA [None]
  - HAEMOGLOBIN DECREASED [None]
  - NEUTROPHIL COUNT DECREASED [None]
  - RED BLOOD CELL COUNT DECREASED [None]
  - WHITE BLOOD CELL COUNT INCREASED [None]
